FAERS Safety Report 20049769 (Version 2)
Quarter: 2021Q4

REPORT INFORMATION
  Report Type: Spontaneous
  Country: DE (occurrence: None)
  Receive Date: 20211109
  Receipt Date: 20211215
  Transmission Date: 20220304
  Serious: Yes (Other)
  Sender: FDA-Public Use
  Company Number: 2021A796939

PATIENT
  Age: 61 Year
  Sex: Female
  Weight: 57 kg

DRUGS (2)
  1. OLAPARIB [Suspect]
     Active Substance: OLAPARIB
     Indication: Ovarian cancer
     Route: 048
     Dates: start: 20180601, end: 20210201
  2. OLAPARIB [Concomitant]
     Active Substance: OLAPARIB
     Indication: Ovarian cancer
     Route: 048
     Dates: start: 201511, end: 20180531

REACTIONS (3)
  - Malignant neoplasm progression [Recovered/Resolved]
  - Metastases to spleen [Recovered/Resolved]
  - Metastases to peritoneum [Recovered/Resolved]

NARRATIVE: CASE EVENT DATE: 20210101
